FAERS Safety Report 4490612-1 (Version None)
Quarter: 2004Q4

REPORT INFORMATION
  Report Type: 
  Country: None (occurrence: None)
  Receive Date: 20041027
  Receipt Date: 20041015
  Transmission Date: 20050328
  Serious: Yes (Death)
  Sender: FDA-Public Use
  Company Number: 105252ISR

PATIENT
  Age: 57 Year
  Sex: Female

DRUGS (16)
  1. ETOPOSIDE [Suspect]
     Dosage: 255 MILLIGRAM
     Route: 042
     Dates: start: 20040921, end: 20040923
  2. GLIMEPIRIDE [Concomitant]
  3. METFORMIN HCL [Concomitant]
  4. PANTOPRAZOLE [Concomitant]
  5. MOXONIDINE [Concomitant]
  6. CANDESARTAN CILEXETIL [Concomitant]
  7. VERAPAMIL [Concomitant]
  8. FUROSEMIDE [Concomitant]
  9. VALPROMIDE [Concomitant]
  10. MEPRONIZINE [Concomitant]
  11. TROPATEPINE HYDROCHLORIDE [Concomitant]
  12. HALOPERIDOL [Concomitant]
  13. MOVICOL [Concomitant]
  14. LYPIREX [Concomitant]
  15. ACETAMINOPHEN [Concomitant]
  16. DACRYOSERUM [Concomitant]

REACTIONS (2)
  - CYANOSIS [None]
  - SUDDEN DEATH [None]
